FAERS Safety Report 25266945 (Version 1)
Quarter: 2025Q2

REPORT INFORMATION
  Report Type: Spontaneous
  Country: TR (occurrence: TR)
  Receive Date: 20250505
  Receipt Date: 20250505
  Transmission Date: 20250717
  Serious: Yes (Hospitalization)
  Sender: Norvium Bioscience
  Company Number: TR-Norvium Bioscience LLC-080095

PATIENT
  Age: 65 Year
  Sex: Female

DRUGS (4)
  1. CISPLATIN [Suspect]
     Active Substance: CISPLATIN
     Indication: Squamous cell carcinoma
  2. CISPLATIN [Suspect]
     Active Substance: CISPLATIN
     Indication: Inguinal mass
     Dates: start: 20240122, end: 20240311
  3. CISPLATIN [Suspect]
     Active Substance: CISPLATIN
     Indication: Inguinal mass
     Dates: start: 2024, end: 2024
  4. CISPLATIN [Suspect]
     Active Substance: CISPLATIN
     Indication: Squamous cell carcinoma
     Dates: start: 2024, end: 2024

REACTIONS (3)
  - Nausea [Unknown]
  - Cystitis [Unknown]
  - Diarrhoea [Unknown]

NARRATIVE: CASE EVENT DATE: 20240101
